FAERS Safety Report 22085387 (Version 1)
Quarter: 2023Q1

REPORT INFORMATION
  Report Type: Spontaneous
  Country: US (occurrence: None)
  Receive Date: 20230309
  Receipt Date: 20230309
  Transmission Date: 20230417
  Serious: Yes (Hospitalization)
  Sender: FDA-Public Use
  Company Number: None

PATIENT
  Sex: Female

DRUGS (2)
  1. TRULICITY [Suspect]
     Active Substance: DULAGLUTIDE
     Indication: Type 2 diabetes mellitus
     Dosage: 0.75MG/0.5ML SUBCUTANNEOUS ??INJECT 0.5ML UNDER THE SKIN (SUBCUTANEOUS INJECTION) EVERY WEEK IN THE
     Route: 058
     Dates: start: 20221130
  2. TRULICITY [Suspect]
     Active Substance: DULAGLUTIDE
     Indication: Diabetic neuropathy

REACTIONS (1)
  - Hospitalisation [None]
